FAERS Safety Report 14170312 (Version 1)
Quarter: 2017Q4

REPORT INFORMATION
  Report Type: Spontaneous
  Country: US (occurrence: None)
  Receive Date: 20171108
  Receipt Date: 20171108
  Transmission Date: 20180321
  Serious: No
  Sender: FDA-Public Use
  Company Number: None

PATIENT
  Age: 56 Year
  Sex: Female

DRUGS (1)
  1. GLATOPA [Suspect]
     Active Substance: GLATIRAMER ACETATE
     Indication: MULTIPLE SCLEROSIS
     Route: 058
     Dates: start: 20170508

REACTIONS (5)
  - Dyspnoea [None]
  - Drug intolerance [None]
  - Product substitution issue [None]
  - Palpitations [None]
  - Tachycardia [None]

NARRATIVE: CASE EVENT DATE: 20170515
